FAERS Safety Report 13512775 (Version 2)
Quarter: 2017Q2

REPORT INFORMATION
  Report Type: Report from Study
  Country: US (occurrence: US)
  Receive Date: 20170504
  Receipt Date: 20170509
  Transmission Date: 20170830
  Serious: Yes (Hospitalization)
  Sender: FDA-Public Use
  Company Number: US-B.I. PHARMACEUTICALS,INC./RIDGEFIELD-2017-BI-024129

PATIENT
  Age: 75 Year
  Sex: Female

DRUGS (1)
  1. GILOTRIF [Suspect]
     Active Substance: AFATINIB
     Indication: LUNG NEOPLASM MALIGNANT
     Dosage: UNKNOWN;  FORMULATION: CAPSULE; ? ADMINISTRATION CORRECT? NR(NOT REPORTED) ?ACTION(S) TAKEN WITH PRO
     Route: 048
     Dates: start: 20170330, end: 20170427

REACTIONS (9)
  - Vomiting [Recovered/Resolved]
  - Swelling [Unknown]
  - Blood potassium decreased [Unknown]
  - Blood pressure decreased [Recovered/Resolved]
  - Headache [Unknown]
  - Diarrhoea [Unknown]
  - Dehydration [Unknown]
  - Pain [Unknown]
  - Paraesthesia oral [Unknown]

NARRATIVE: CASE EVENT DATE: 201704
